FAERS Safety Report 14231285 (Version 1)
Quarter: 2017Q4

REPORT INFORMATION
  Report Type: Spontaneous
  Country: US (occurrence: US)
  Receive Date: 20171128
  Receipt Date: 20171128
  Transmission Date: 20180321
  Serious: No
  Sender: FDA-Public Use
  Company Number: US-JNJFOC-20171009764

PATIENT
  Sex: Male

DRUGS (1)
  1. TYLENOL WITH CODEINE [Suspect]
     Active Substance: ACETAMINOPHEN\CODEINE PHOSPHATE
     Indication: BACK PAIN
     Dosage: AS NEEDED
     Route: 048
     Dates: start: 2016

REACTIONS (2)
  - Pain [Unknown]
  - Herpes zoster [Unknown]

NARRATIVE: CASE EVENT DATE: 2016
